FAERS Safety Report 14303125 (Version 2)
Quarter: 2018Q4

REPORT INFORMATION
  Report Type: Spontaneous
  Country: JP (occurrence: JP)
  Receive Date: 20171219
  Receipt Date: 20181012
  Transmission Date: 20190204
  Serious: Yes (Hospitalization, Other)
  Sender: FDA-Public Use
  Company Number: JP-BAUSCH-BL-2017-033352

PATIENT
  Age: 57 Year
  Sex: Male

DRUGS (3)
  1. PREDNISOLONE. [Suspect]
     Active Substance: PREDNISOLONE
     Route: 065
  2. MYCOPHENOLATE MOFETIL. [Suspect]
     Active Substance: MYCOPHENOLATE MOFETIL
     Indication: IMMUNOGLOBULIN G4 RELATED DISEASE
     Route: 065
  3. PREDNISOLONE. [Suspect]
     Active Substance: PREDNISOLONE
     Indication: IMMUNOGLOBULIN G4 RELATED DISEASE
     Route: 065

REACTIONS (1)
  - Condition aggravated [Unknown]
